FAERS Safety Report 19821843 (Version 1)
Quarter: 2021Q3

REPORT INFORMATION
  Report Type: Spontaneous
  Country: US (occurrence: US)
  Receive Date: 20210909
  Receipt Date: 20210909
  Transmission Date: 20211014
  Serious: Yes (Hospitalization)
  Sender: FDA-Public Use
  Company Number: None

PATIENT
  Sex: Male

DRUGS (16)
  1. TOUJEO [Concomitant]
     Active Substance: INSULIN GLARGINE
  2. AMBIEN [Concomitant]
     Active Substance: ZOLPIDEM TARTRATE
  3. DILTIAZEM. [Concomitant]
     Active Substance: DILTIAZEM
  4. VITAMIN D3 [Concomitant]
     Active Substance: CHOLECALCIFEROL
  5. ESBRIET [Suspect]
     Active Substance: PIRFENIDONE
     Indication: IDIOPATHIC PULMONARY FIBROSIS
     Dosage: TAKE 3 TABLETS BY MOUTH THREE TIMES DAILY WITH MEALS
     Route: 048
     Dates: start: 20201212
  6. ALLOPURINOL. [Concomitant]
     Active Substance: ALLOPURINOL
  7. FUROSEMIDE. [Concomitant]
     Active Substance: FUROSEMIDE
  8. DEPAKOTE [Concomitant]
     Active Substance: DIVALPROEX SODIUM
  9. XARELTO [Concomitant]
     Active Substance: RIVAROXABAN
  10. GABAPENTIN. [Concomitant]
     Active Substance: GABAPENTIN
  11. PROTONIX [Concomitant]
     Active Substance: PANTOPRAZOLE SODIUM
  12. TOPROL XL [Concomitant]
     Active Substance: METOPROLOL SUCCINATE
  13. ABILIFY [Concomitant]
     Active Substance: ARIPIPRAZOLE
  14. ATORVASTATIN [Concomitant]
     Active Substance: ATORVASTATIN
  15. HUMALOG [Concomitant]
     Active Substance: INSULIN LISPRO
  16. ISOSORB [Concomitant]

REACTIONS (1)
  - Hospitalisation [None]
